FAERS Safety Report 6953765-9 (Version None)
Quarter: 2010Q3

REPORT INFORMATION
  Report Type: 
  Country: None (occurrence: None)
  Receive Date: 20100829
  Receipt Date: 20100623
  Transmission Date: 20110219
  Serious: No
  Sender: FDA-Public Use
  Company Number: US-ABBOTT-10P-163-0653354-00

PATIENT
  Sex: Male
  Weight: 99.88 kg

DRUGS (8)
  1. NIASPAN [Suspect]
     Indication: DYSLIPIDAEMIA
     Route: 048
     Dates: start: 20100423, end: 20100501
  2. NIASPAN [Suspect]
     Route: 048
     Dates: start: 20100501
  3. ZOCOR [Concomitant]
     Indication: PRODUCT USED FOR UNKNOWN INDICATION
     Route: 048
  4. ASPIRIN [Concomitant]
     Indication: PRODUCT USED FOR UNKNOWN INDICATION
     Route: 048
  5. ATIVAN [Concomitant]
     Indication: INSOMNIA
     Route: 048
  6. PRILOSEC [Concomitant]
     Indication: PRODUCT USED FOR UNKNOWN INDICATION
     Route: 048
  7. LISINOPRIL [Concomitant]
     Indication: PRODUCT USED FOR UNKNOWN INDICATION
     Route: 048
  8. METOPROLOL [Concomitant]
     Indication: PRODUCT USED FOR UNKNOWN INDICATION
     Route: 048

REACTIONS (3)
  - ERYTHEMA [None]
  - FEELING HOT [None]
  - FLUSHING [None]
